FAERS Safety Report 8016073-3 (Version None)
Quarter: 2011Q4

REPORT INFORMATION
  Report Type: 
  Country: None (occurrence: None)
  Receive Date: 20111230
  Receipt Date: 20111228
  Transmission Date: 20120403
  Serious: Yes (Other)
  Sender: FDA-Public Use
  Company Number: DK-ABBOTT-11P-044-0855210-00

PATIENT
  Sex: Female
  Weight: 92 kg

DRUGS (2)
  1. PREDNISOLONE [Concomitant]
     Indication: SERONEGATIVE ARTHRITIS
     Dosage: 5 MG DAILY DOSE
     Dates: start: 20100920, end: 20111001
  2. HUMIRA [Suspect]
     Indication: SERONEGATIVE ARTHRITIS
     Dates: start: 20100920, end: 20110516

REACTIONS (1)
  - PYREXIA [None]
